FAERS Safety Report 7054724-0 (Version None)
Quarter: 2010Q4

REPORT INFORMATION
  Report Type: 
  Country: None (occurrence: None)
  Receive Date: 20101015
  Receipt Date: 20101004
  Transmission Date: 20110411
  Serious: Yes (Hospitalization, Other)
  Sender: FDA-Public Use
  Company Number: 1000013973

PATIENT
  Age: 63 Year
  Sex: Female
  Weight: 56.69 kg

DRUGS (8)
  1. SAVELLA [Suspect]
     Indication: FIBROMYALGIA
     Dosage: 100 MG (50 MG,2 IN 1 D),ORAL ; 50 MG AM; 25 MG PM,ORAL ; 50 MG (25 MG,2 IN 1 D),ORAL
     Route: 048
     Dates: start: 20090514, end: 20100101
  2. SAVELLA [Suspect]
     Indication: FIBROMYALGIA
     Dosage: 100 MG (50 MG,2 IN 1 D),ORAL ; 50 MG AM; 25 MG PM,ORAL ; 50 MG (25 MG,2 IN 1 D),ORAL
     Route: 048
     Dates: start: 20100101, end: 20100101
  3. SAVELLA [Suspect]
     Indication: FIBROMYALGIA
     Dosage: 100 MG (50 MG,2 IN 1 D),ORAL ; 50 MG AM; 25 MG PM,ORAL ; 50 MG (25 MG,2 IN 1 D),ORAL
     Route: 048
     Dates: start: 20100101, end: 20100201
  4. SAVELLA [Suspect]
     Indication: FIBROMYALGIA
     Dosage: 25 MG QOD (1 IN 2 D),ORAL
     Route: 048
     Dates: start: 20100201, end: 20100210
  5. LYRICA [Suspect]
     Dosage: 25 MG (25 MG,1 IN 1 D),ORAL
     Route: 048
  6. PLAQUENIL (HYDROXYCHLOROQUINE) (HYDROXYCHLOROQUINE) [Concomitant]
  7. METOPROLOL SUCCINATE [Concomitant]
  8. WAFARIN (WAFARIN)  (WAFARIN) [Concomitant]

REACTIONS (15)
  - BLOOD PRESSURE INCREASED [None]
  - CHEST DISCOMFORT [None]
  - CHEST PAIN [None]
  - CONSTIPATION [None]
  - DECREASED APPETITE [None]
  - DEPRESSION [None]
  - DIZZINESS [None]
  - DYSPHAGIA [None]
  - FATIGUE [None]
  - HEADACHE [None]
  - HEART RATE IRREGULAR [None]
  - HYPERHIDROSIS [None]
  - NAUSEA [None]
  - SEROTONIN SYNDROME [None]
  - VENTRICULAR TACHYCARDIA [None]
